FAERS Safety Report 15180929 (Version 2)
Quarter: 2018Q3

REPORT INFORMATION
  Report Type: Report from Study
  Country: FI (occurrence: FI)
  Receive Date: 20180723
  Receipt Date: 20180830
  Transmission Date: 20181010
  Serious: Yes (Death, Hospitalization, Other)
  Sender: FDA-Public Use
  Company Number: FI-MYLANLABS-2018M1055463

PATIENT
  Age: 38 Year
  Sex: Female

DRUGS (3)
  1. LEPONEX [Suspect]
     Active Substance: CLOZAPINE
     Indication: SCHIZOAFFECTIVE DISORDER
     Dosage: UNK, QD
  2. LEPONEX [Suspect]
     Active Substance: CLOZAPINE
     Dosage: 375 MG, QD
  3. LEPONEX [Suspect]
     Active Substance: CLOZAPINE
     Dosage: 75 MG, QD

REACTIONS (7)
  - Congestive cardiomyopathy [Fatal]
  - Suicidal behaviour [Unknown]
  - Off label use [Recovered/Resolved]
  - Anxiety [Unknown]
  - Maternal exposure during pregnancy [Recovered/Resolved]
  - Premature delivery [Unknown]
  - Cardiac function disturbance postoperative [Recovering/Resolving]

NARRATIVE: CASE EVENT DATE: 20180702
